FAERS Safety Report 5152251-9 (Version None)
Quarter: 2006Q4

REPORT INFORMATION
  Report Type: 
  Country: None (occurrence: None)
  Receive Date: 20061114
  Receipt Date: 20061114
  Transmission Date: 20070319
  Serious: Yes (Other)
  Sender: FDA-Public Use
  Company Number: None

PATIENT
  Sex: Female
  Weight: 49.8957 kg

DRUGS (2)
  1. TRIAMCINOLONE [Suspect]
     Indication: ROSACEA
     Dosage: 250 MG BID PO
     Route: 048
     Dates: start: 20060507, end: 20060515
  2. TOPROL-XL [Concomitant]

REACTIONS (6)
  - ASTHENIA [None]
  - CONTUSION [None]
  - DRUG DISPENSING ERROR [None]
  - MYOPATHY STEROID [None]
  - ORAL CANDIDIASIS [None]
  - WRONG DRUG ADMINISTERED [None]
